FAERS Safety Report 7374395-3 (Version None)
Quarter: 2011Q1

REPORT INFORMATION
  Report Type: 
  Country: None (occurrence: None)
  Receive Date: 20110316
  Receipt Date: 20110304
  Transmission Date: 20110831
  Serious: Yes (Other)
  Sender: FDA-Public Use
  Company Number: 027775

PATIENT
  Sex: Female
  Weight: 70 kg

DRUGS (4)
  1. LAMOTRIGINE [Concomitant]
  2. VALPROATE SODIUM [Concomitant]
  3. CLONAZEPAM [Concomitant]
  4. VIMPAT [Suspect]
     Indication: CONVULSION
     Dosage: (50 MG BID ORAL) (50 MG QD)
     Route: 048
     Dates: start: 20090715

REACTIONS (2)
  - COORDINATION ABNORMAL [None]
  - SOMNOLENCE [None]
